FAERS Safety Report 10142709 (Version 1)
Quarter: 2014Q2

REPORT INFORMATION
  Report Type: Spontaneous
  Country: PL (occurrence: PL)
  Receive Date: 20140430
  Receipt Date: 20140430
  Transmission Date: 20141212
  Serious: Yes (Death)
  Sender: FDA-Public Use
  Company Number: PL-ACTELION-A-CH2014-98104

PATIENT
  Age: 20 Year
  Sex: Male

DRUGS (1)
  1. TRACLEER [Suspect]
     Indication: EISENMENGER^S SYNDROME
     Dosage: UNK
     Route: 048
     Dates: start: 2012

REACTIONS (1)
  - Acute respiratory failure [Fatal]
